FAERS Safety Report 18131386 (Version 2)
Quarter: 2020Q3

REPORT INFORMATION
  Report Type: Spontaneous
  Country: US (occurrence: US)
  Receive Date: 20200810
  Receipt Date: 20200814
  Transmission Date: 20201103
  Serious: No
  Sender: FDA-Public Use
  Company Number: US-STRONGBRIDGE BIOPHARMA-2020-STR-000189

PATIENT
  Sex: Female

DRUGS (1)
  1. KEVEYIS [Suspect]
     Active Substance: DICHLORPHENAMIDE
     Indication: FAMILIAL PERIODIC PARALYSIS
     Dosage: 50 MG, BID
     Route: 048

REACTIONS (4)
  - Sinusitis [Recovering/Resolving]
  - Decreased appetite [Not Recovered/Not Resolved]
  - Malaise [Recovering/Resolving]
  - Feeling abnormal [Not Recovered/Not Resolved]
